FAERS Safety Report 20860899 (Version 3)
Quarter: 2022Q3

REPORT INFORMATION
  Report Type: Report from Study
  Country: FR (occurrence: None)
  Receive Date: 20220523
  Receipt Date: 20220701
  Transmission Date: 20221026
  Serious: Yes (Hospitalization)
  Sender: FDA-Public Use
  Company Number: 2022A186683

PATIENT
  Age: 25821 Day
  Sex: Male
  Weight: 87 kg

DRUGS (15)
  1. EVUSHELD [Suspect]
     Active Substance: CILGAVIMAB\TIXAGEVIMAB
     Indication: COVID-19 prophylaxis
     Dosage: TIXAGEVIMAB 150 MG /CILGAVIMAB 150 MG
     Route: 030
     Dates: start: 20220214, end: 20220214
  2. RITUXIMAB [Concomitant]
     Active Substance: RITUXIMAB
     Dosage: ORAL ROUTE, 420 MG IN THE MORNING
     Route: 065
  3. IBRUTINIB [Concomitant]
     Active Substance: IBRUTINIB
     Dosage: ORAL ROUTE, 420 MG IN THE MORNING
     Route: 065
  4. VALACYCLOVIR HYDROCHLORIDE [Concomitant]
     Active Substance: VALACYCLOVIR HYDROCHLORIDE
     Indication: Prophylaxis
     Dosage: DOSAGE OF 500 MG
     Route: 048
  5. PANTOPRAZOLE [Concomitant]
     Active Substance: PANTOPRAZOLE
     Indication: Gastrooesophageal reflux disease
     Dosage: AT 20 MG IN THE EVENING
     Route: 065
  6. NICOTINE [Concomitant]
     Active Substance: NICOTINE
     Dosage: AT 21 MG/24 HOURS
     Route: 062
  7. NICOTINE [Concomitant]
     Active Substance: NICOTINE
     Dosage: 1.5 MG WITHOUT SUGAR
     Route: 048
  8. IRBESARTAN [Concomitant]
     Active Substance: IRBESARTAN
     Indication: Hypertension
     Dosage: AT 75 MG IN THE MORNING
     Route: 048
  9. FUROSEMIDE [Concomitant]
     Active Substance: FUROSEMIDE
     Indication: Diuretic therapy
     Dosage: AT 40 MG IN THE MORNING
     Route: 048
  10. SERETIDE [Concomitant]
     Active Substance: FLUTICASONE PROPIONATE\SALMETEROL XINAFOATE
     Indication: Asthma
     Dosage: 25 MICROGRAM/250 MICROGRAM/DOSE ONE INHALATION IN THE MORNING AND ONE IN THE EVENING
     Route: 065
  11. EZETIMIBE [Concomitant]
     Active Substance: EZETIMIBE
     Dosage: DOSAGE OF 10 MG IN THE EVENING
     Route: 048
  12. BISOPROLOL [Concomitant]
     Active Substance: BISOPROLOL
     Dosage: 1.25 MG IN THE MORNING
     Route: 048
  13. ASPIRIN\ATORVASTATIN\METOPROLOL\RAMIPRIL [Concomitant]
     Active Substance: ASPIRIN\ATORVASTATIN\METOPROLOL\RAMIPRIL
     Dosage: 80 MG IN THE EVENING
     Route: 048
  14. AMLODIPINE/ALISKIREN/HYDROCHLOROTHIAZIDE [Concomitant]
     Indication: Hypertension
     Dosage: DOSAGE OF 10 MG AT 10 AM
     Route: 048
  15. ASPIRIN [Concomitant]
     Active Substance: ASPIRIN
     Dosage: 100 MG AT NOON
     Route: 048

REACTIONS (4)
  - Cardiac disorder [Recovered/Resolved]
  - Dyspnoea exertional [Recovered/Resolved]
  - Myocarditis [Recovered/Resolved]
  - Iliac artery occlusion [Recovered/Resolved]

NARRATIVE: CASE EVENT DATE: 20220328
